FAERS Safety Report 7484159-8 (Version None)
Quarter: 2011Q2

REPORT INFORMATION
  Report Type: 
  Country: None (occurrence: None)
  Receive Date: 20110517
  Receipt Date: 20110504
  Transmission Date: 20111010
  Serious: Yes (Hospitalization, Other)
  Sender: FDA-Public Use
  Company Number: CA-ELI_LILLY_AND_COMPANY-CA201105000949

PATIENT
  Sex: Male
  Weight: 109 kg

DRUGS (8)
  1. CLONAZEPAM [Concomitant]
  2. EFFEXOR XR [Concomitant]
  3. LORAZEPAM [Concomitant]
  4. ZYPREXA [Suspect]
     Dosage: 2.5 MG, UNK
  5. ZYPREXA [Suspect]
     Dosage: 10 MG, UNK
  6. ZYPREXA [Suspect]
     Dosage: 15 MG, UNK
  7. ZOPICLONE [Concomitant]
  8. ZYPREXA [Suspect]
     Indication: SCHIZOPHRENIA
     Dosage: 7.5 MG, UNK
     Dates: start: 20021001

REACTIONS (8)
  - TYPE 2 DIABETES MELLITUS [None]
  - ONYCHOMYCOSIS [None]
  - INFARCTION [None]
  - SINUS TACHYCARDIA [None]
  - WEIGHT INCREASED [None]
  - HYPERGLYCAEMIC HYPEROSMOLAR NONKETOTIC SYNDROME [None]
  - OVERDOSE [None]
  - BLOOD TRIGLYCERIDES INCREASED [None]
